FAERS Safety Report 5662681-4 (Version None)
Quarter: 2008Q1

REPORT INFORMATION
  Report Type: 
  Country: None (occurrence: None)
  Receive Date: 20080313
  Receipt Date: 20080228
  Transmission Date: 20080703
  Serious: Yes (Other)
  Sender: FDA-Public Use
  Company Number: US-AMGEN-QUU267434

PATIENT
  Age: 65 Year
  Sex: Female

DRUGS (3)
  1. NEULASTA [Suspect]
     Indication: CHEMOTHERAPY
     Route: 065
     Dates: start: 20071220, end: 20080201
  2. GEMCITABINE [Concomitant]
     Dates: start: 20070801
  3. CARBOPLATIN [Concomitant]
     Dates: start: 20070801

REACTIONS (5)
  - BONE PAIN [None]
  - CHEST PAIN [None]
  - CHILLS [None]
  - PALPITATIONS [None]
  - PYREXIA [None]
